FAERS Safety Report 8832294 (Version 9)
Quarter: 2013Q2

REPORT INFORMATION
  Report Type: Spontaneous
  Country: US (occurrence: US)
  Receive Date: 20121009
  Receipt Date: 20130614
  Transmission Date: 20140414
  Serious: Yes (Hospitalization)
  Sender: FDA-Public Use
  Company Number: US-ASTRAZENECA-2012SE75108

PATIENT
  Age: 977 Month
  Sex: Female
  Weight: 67.1 kg

DRUGS (7)
  1. NEXIUM [Suspect]
     Indication: GASTROOESOPHAGEAL REFLUX DISEASE
     Route: 048
     Dates: start: 201303
  2. NEXIUM [Suspect]
     Indication: DYSPEPSIA
     Route: 048
     Dates: start: 201303
  3. REMICADE [Suspect]
     Indication: ARTHRITIS
     Route: 042
  4. VYTORIN [Concomitant]
     Indication: BLOOD CHOLESTEROL ABNORMAL
     Dosage: 10/20 DAILY
     Route: 048
  5. TRIAMCINOLONE CREAM EUCERIN [Concomitant]
     Indication: PAIN IN EXTREMITY
     Dosage: TWO TIMES DAILY.
     Route: 061
     Dates: start: 201305
  6. ZANTAC [Concomitant]
     Dosage: GENERIC.
  7. CHOLESTEROL MEDICATION [Concomitant]
     Indication: BLOOD CHOLESTEROL ABNORMAL

REACTIONS (15)
  - Presyncope [Unknown]
  - Cardiac disorder [Unknown]
  - Cough [Unknown]
  - Asthenia [Unknown]
  - Dyspepsia [Unknown]
  - Pneumonia [Unknown]
  - Bronchitis [Unknown]
  - Nasopharyngitis [Unknown]
  - Rheumatoid arthritis [Unknown]
  - Pain in extremity [Unknown]
  - Rash [Recovered/Resolved]
  - Headache [Unknown]
  - Rash [Not Recovered/Not Resolved]
  - Intentional drug misuse [Unknown]
  - Drug dose omission [Unknown]
